FAERS Safety Report 6053049-X (Version None)
Quarter: 2009Q1

REPORT INFORMATION
  Report Type: 
  Country: None (occurrence: None)
  Receive Date: 20090122
  Receipt Date: 20090112
  Transmission Date: 20090719
  Serious: Yes (Other)
  Sender: FDA-Public Use
  Company Number: 2009AP000103

PATIENT
  Age: 67 Year
  Sex: Female

DRUGS (8)
  1. ALENDRONATE SODIUM [Suspect]
     Indication: OSTEOPOROSIS
     Dosage: 70 MG; QW; PO
     Route: 048
     Dates: start: 20081214, end: 20081228
  2. EZETIMIBE [Concomitant]
  3. LATANOPROST [Concomitant]
  4. TRIAMTERENE AND HYDROCHLOROTHIAZIDE [Concomitant]
  5. METFORMIN [Concomitant]
  6. ALENDRONATE SODIUM [Concomitant]
  7. LEVOTHYROXINE SODIUM [Concomitant]
  8. LIOTHYRONINE SODIUM [Concomitant]

REACTIONS (2)
  - DEPRESSION [None]
  - HEADACHE [None]
